FAERS Safety Report 21833604 (Version 7)
Quarter: 2024Q2

REPORT INFORMATION
  Report Type: Spontaneous
  Country: US (occurrence: US)
  Receive Date: 20230107
  Receipt Date: 20240401
  Transmission Date: 20240716
  Serious: Yes (Hospitalization, Other)
  Sender: FDA-Public Use
  Company Number: US-Accord-294379

PATIENT
  Age: 66 Year
  Sex: Male
  Weight: 84.8 kg

DRUGS (50)
  1. GEMCITABINE [Suspect]
     Active Substance: GEMCITABINE
     Indication: Diffuse large B-cell lymphoma stage I
     Dosage: C1D1-C3D15
     Route: 042
     Dates: start: 20220801, end: 20220902
  2. OXALIPLATIN [Suspect]
     Active Substance: OXALIPLATIN
     Indication: Diffuse large B-cell lymphoma stage I
     Dosage: C1D1-C2D1
     Route: 042
     Dates: start: 20220801, end: 20220902
  3. EPCORITAMAB [Concomitant]
     Active Substance: EPCORITAMAB
     Indication: Diffuse large B-cell lymphoma stage I
     Dosage: PRIMING DOSE: 0.16 MG; SINGLE?C1D1
     Route: 058
     Dates: start: 20220801, end: 20220801
  4. DIPHENHYDRAMINE [Concomitant]
     Active Substance: DIPHENHYDRAMINE
     Indication: Premedication
     Dosage: 50 MG
     Route: 048
     Dates: start: 20220801, end: 20220902
  5. ACETAMINOPHEN [Concomitant]
     Active Substance: ACETAMINOPHEN
     Indication: Premedication
     Dosage: 650 MG
     Route: 048
     Dates: start: 20220801, end: 20220902
  6. PREDNISONE [Concomitant]
     Active Substance: PREDNISONE
     Indication: Prophylaxis
     Dosage: 100 MG
     Route: 048
     Dates: start: 20220802, end: 20220812
  7. ALBUTEROL [Concomitant]
     Active Substance: ALBUTEROL
     Dates: start: 20220422
  8. EPINEPHRINE [Concomitant]
     Active Substance: EPINEPHRINE
     Dates: start: 20220422
  9. FAMOTIDINE [Concomitant]
     Active Substance: FAMOTIDINE
     Dates: start: 20220801
  10. GLUCAGON [Concomitant]
     Active Substance: GLUCAGON\GLUCAGON HYDROCHLORIDE\WATER
     Dates: start: 20220425
  11. ONDANSETRON [Concomitant]
     Active Substance: ONDANSETRON
     Dates: start: 20220801
  12. DEXTROSE [Concomitant]
     Active Substance: DEXTROSE\DEXTROSE MONOHYDRATE
  13. HYDROMORPHONE [Concomitant]
     Active Substance: HYDROMORPHONE
     Dates: start: 20220803
  14. ACETAMINOPHEN [Concomitant]
     Active Substance: ACETAMINOPHEN
     Dates: start: 20230328
  15. ACYCLOVIR [Concomitant]
     Active Substance: ACYCLOVIR
     Dates: start: 20220419
  16. ALLOPURINOL [Concomitant]
     Active Substance: ALLOPURINOL
     Dates: start: 20220419
  17. ENTECAVIR [Concomitant]
     Active Substance: ENTECAVIR
     Dates: start: 20220729
  18. GABAPENTIN [Concomitant]
     Active Substance: GABAPENTIN
     Dates: start: 20220328, end: 20220811
  19. OLANZAPINE [Concomitant]
     Active Substance: OLANZAPINE
     Dates: start: 20220419
  20. PANTOPRAZOLE [Concomitant]
     Active Substance: PANTOPRAZOLE
  21. SENNOSIDES A AND B [Concomitant]
     Active Substance: SENNOSIDES A AND B
     Dates: start: 20220729
  22. SULFAMETHOXAZOLE\TRIMETHOPRIM [Concomitant]
     Active Substance: SULFAMETHOXAZOLE\TRIMETHOPRIM
     Dates: start: 20220419
  23. PROCHLORPERAZINE [Concomitant]
     Active Substance: PROCHLORPERAZINE
     Dates: start: 20220801
  24. DEXAMETHASONE [Concomitant]
     Active Substance: DEXAMETHASONE
     Route: 042
     Dates: start: 20220819
  25. MIRALAX [Concomitant]
     Active Substance: POLYETHYLENE GLYCOL 3350
     Dates: start: 20220729, end: 20220808
  26. FLUCONAZOLE [Concomitant]
     Active Substance: FLUCONAZOLE
     Dates: start: 20220816, end: 20220816
  27. OXYCODONE [Concomitant]
     Active Substance: OXYCODONE\OXYCODONE HYDROCHLORIDE
     Dates: start: 20220814
  28. ALTEPLASE [Concomitant]
     Active Substance: ALTEPLASE
     Dates: start: 20220818, end: 20220818
  29. FILGRASTIM [Concomitant]
     Active Substance: FILGRASTIM
     Dates: start: 20220820, end: 20220820
  30. SODIUM PHOSPHATE [Concomitant]
     Active Substance: SODIUM PHOSPHATE
     Dates: start: 20220824, end: 20220824
  31. VANCOMYCIN [Concomitant]
     Active Substance: VANCOMYCIN
     Dates: start: 20220813, end: 20220824
  32. PALONOSETRON [Concomitant]
     Active Substance: PALONOSETRON
     Dates: start: 20220902, end: 20221109
  33. HEPARIN [Concomitant]
     Active Substance: HEPARIN SODIUM
     Dates: start: 20220902, end: 20220902
  34. MORPHINE [Concomitant]
     Active Substance: MORPHINE
     Dates: start: 20220904, end: 20220904
  35. ENOXAPARIN [Concomitant]
     Active Substance: ENOXAPARIN
     Dates: start: 20220905, end: 20220915
  36. INSULIN LISPRO [Concomitant]
     Active Substance: INSULIN LISPRO
     Dates: start: 20220729
  37. IBUPROFEN [Concomitant]
     Active Substance: IBUPROFEN
     Dates: start: 20220513
  38. MAGNESIUM SULFATE [Concomitant]
     Active Substance: MAGNESIUM SULFATE\MAGNESIUM SULFATE HEPTAHYDRATE
     Dates: start: 20220907, end: 20220907
  39. SUCRALFATE [Concomitant]
     Active Substance: SUCRALFATE
     Dates: start: 20220909, end: 20220915
  40. ACETAMINOPHEN [Concomitant]
     Active Substance: ACETAMINOPHEN
     Dates: start: 20220905
  41. DEXAMETHASONE [Concomitant]
     Active Substance: DEXAMETHASONE
     Route: 042
     Dates: start: 20220902
  42. PREDNISONE [Concomitant]
     Active Substance: PREDNISONE
     Indication: Prophylaxis
     Dosage: 100 MG
     Route: 048
     Dates: start: 20220830, end: 20220831
  43. EPCORITAMAB [Concomitant]
     Active Substance: EPCORITAMAB
     Indication: Diffuse large B-cell lymphoma stage I
     Dosage: INTERMEDIATE DOSE: 0.8 MG; SINGLE?C1D8
     Route: 058
     Dates: start: 20220808, end: 20220808
  44. EPCORITAMAB [Concomitant]
     Active Substance: EPCORITAMAB
     Indication: Diffuse large B-cell lymphoma stage I
     Dosage: FULL DOSE: 48 MILLIGRAM, WEEKLY;?C1D15-C2D1
     Route: 058
     Dates: start: 20220819, end: 20220902
  45. DIPHENHYDRAMINE [Concomitant]
     Active Substance: DIPHENHYDRAMINE
     Indication: Premedication
     Dosage: 50 MG
     Route: 048
     Dates: start: 20220801, end: 20220801
  46. DIPHENHYDRAMINE [Concomitant]
     Active Substance: DIPHENHYDRAMINE
     Indication: Premedication
     Dosage: 50 MG
     Route: 048
     Dates: start: 20220902, end: 20220902
  47. ACETAMINOPHEN [Concomitant]
     Active Substance: ACETAMINOPHEN
     Indication: Premedication
     Dosage: 650 MG
     Route: 048
     Dates: start: 20220801, end: 20220801
  48. ACETAMINOPHEN [Concomitant]
     Active Substance: ACETAMINOPHEN
     Indication: Premedication
     Dosage: 650 MG
     Route: 048
     Dates: start: 20220902, end: 20220902
  49. PREDNISONE [Concomitant]
     Active Substance: PREDNISONE
     Indication: Prophylaxis
     Dosage: 100 MG
     Route: 048
     Dates: start: 20220808, end: 20220808
  50. PREDNISONE [Concomitant]
     Active Substance: PREDNISONE
     Indication: Prophylaxis
     Dosage: 100 MG
     Route: 048
     Dates: start: 20220802, end: 20220804

REACTIONS (4)
  - Back pain [Unknown]
  - Abdominal pain [Unknown]
  - Fall [Unknown]
  - Diarrhoea [Recovered/Resolved]

NARRATIVE: CASE EVENT DATE: 20220813
